FAERS Safety Report 5113513-4 (Version None)
Quarter: 2006Q3

REPORT INFORMATION
  Report Type: 
  Country: None (occurrence: None)
  Receive Date: 20060921
  Receipt Date: 20060911
  Transmission Date: 20061208
  Serious: Yes (Other)
  Sender: FDA-Public Use
  Company Number: 2006109605

PATIENT
  Age: 56 Year
  Sex: Male
  Weight: 106.5953 kg

DRUGS (10)
  1. LIPITOR [Suspect]
     Indication: BLOOD CHOLESTEROL INCREASED
     Dosage: 20 MG (20 MG, 1 IN 1 D)
  2. LISINOPRIL [Concomitant]
  3. FUROSEMIDE [Concomitant]
  4. ALLOPURINOL [Concomitant]
  5. DOXYCYCLINE [Concomitant]
  6. METOPROLOL (METOPROLOL) [Concomitant]
  7. ACETYLSALICYLIC ACID (ACETYLSALICYCLIC ACID) [Concomitant]
  8. CALCIUM (CALCIUM) [Concomitant]
  9. VITAMINS (VITAMINS) [Concomitant]
  10. OMEPRAZOLE [Concomitant]

REACTIONS (1)
  - PSORIASIS [None]
